FAERS Safety Report 4485302-5 (Version None)
Quarter: 2004Q4

REPORT INFORMATION
  Report Type: 
  Country: None (occurrence: None)
  Receive Date: 20041022
  Receipt Date: 20041022
  Transmission Date: 20050328
  Serious: No
  Sender: FDA-Public Use
  Company Number: None

PATIENT
  Age: 49 Year
  Sex: Female
  Weight: 61.2356 kg

DRUGS (1)
  1. PAXIL [Suspect]
     Indication: MAJOR DEPRESSION
     Dosage: 1 DAILY ORAL
     Route: 048
     Dates: start: 20010720, end: 20020503

REACTIONS (4)
  - AMNESIA [None]
  - DRUG WITHDRAWAL SYNDROME [None]
  - MURDER [None]
  - PHYSICAL ASSAULT [None]
